FAERS Safety Report 7518363-7 (Version None)
Quarter: 2011Q2

REPORT INFORMATION
  Report Type: 
  Country: None (occurrence: None)
  Receive Date: 20110601
  Receipt Date: 20110601
  Transmission Date: 20111010
  Serious: Yes (Life-Threatening)
  Sender: FDA-Public Use
  Company Number: None

PATIENT
  Age: 67 Year
  Sex: Male
  Weight: 50.8029 kg

DRUGS (3)
  1. PROTAMINE SULFATE [Concomitant]
  2. DABIGATRAN 150MG 150MG [Suspect]
     Indication: ATRIAL FIBRILLATION
     Dosage: 150MG TWICE DAILY PO
     Route: 048
  3. FEIBA [Concomitant]

REACTIONS (4)
  - HYPOTENSION [None]
  - HAEMATOMA [None]
  - CARDIAC PERFORATION [None]
  - PERICARDIAL HAEMORRHAGE [None]
